FAERS Safety Report 14997433 (Version 1)
Quarter: 2018Q2

REPORT INFORMATION
  Report Type: Spontaneous
  Country: US (occurrence: US)
  Receive Date: 20180611
  Receipt Date: 20180611
  Transmission Date: 20180711
  Serious: No
  Sender: FDA-Public Use
  Company Number: US-PERNIX THERAPEUTICS-US-2018PER001524

PATIENT
  Age: 68 Year
  Sex: Female

DRUGS (2)
  1. ONZETRA [Suspect]
     Active Substance: SUMATRIPTAN SUCCINATE
     Indication: MIGRAINE WITHOUT AURA
     Dosage: 11 MG, UNK
     Route: 065
     Dates: start: 201611
  2. TREXIMET [Suspect]
     Active Substance: NAPROXEN SODIUM\SUMATRIPTAN SUCCINATE
     Indication: PRODUCT USED FOR UNKNOWN INDICATION
     Dosage: UNK, UNK, UNK
     Route: 065

REACTIONS (6)
  - Musculoskeletal pain [Unknown]
  - Conjunctival haemorrhage [Unknown]
  - Rotator cuff syndrome [Unknown]
  - Scoliosis [Recovering/Resolving]
  - Joint instability [Unknown]
  - Spinal instability [Unknown]

NARRATIVE: CASE EVENT DATE: 201701
